FAERS Safety Report 18468671 (Version 1)
Quarter: 2020Q4

REPORT INFORMATION
  Report Type: Spontaneous
  Country: FR (occurrence: FR)
  Receive Date: 20201105
  Receipt Date: 20201105
  Transmission Date: 20210114
  Serious: Yes (Congenital Anomaly, Other)
  Sender: FDA-Public Use
  Company Number: FR-GLAXOSMITHKLINE-FR2020217828

PATIENT
  Sex: Male

DRUGS (2)
  1. DEPAKINE [Suspect]
     Active Substance: VALPROATE SODIUM
     Indication: EPILEPSY
     Dosage: 1500 MG, QD
     Route: 064
     Dates: start: 20050811, end: 20060420
  2. LAMICTAL [Suspect]
     Active Substance: LAMOTRIGINE
     Indication: EPILEPSY
     Dosage: 250 MG, QD (50 MG MORNING AND 200 MG EVENING)
     Route: 064
     Dates: start: 20050811, end: 20060420

REACTIONS (2)
  - Foetal exposure during pregnancy [Unknown]
  - Hypospadias [Recovered/Resolved]

NARRATIVE: CASE EVENT DATE: 20060420
